APPROVED DRUG PRODUCT: XARELTO
Active Ingredient: RIVAROXABAN
Strength: 1MG/ML
Dosage Form/Route: FOR SUSPENSION;ORAL
Application: N215859 | Product #001 | TE Code: AB
Applicant: JANSSEN PHARMACEUTICALS INC
Approved: Dec 20, 2021 | RLD: Yes | RS: Yes | Type: RX